FAERS Safety Report 10191519 (Version 1)
Quarter: 2014Q2

REPORT INFORMATION
  Report Type: Spontaneous
  Country: US (occurrence: None)
  Receive Date: 20140522
  Receipt Date: 20140522
  Transmission Date: 20141212
  Serious: No
  Sender: FDA-Public Use
  Company Number: None

PATIENT
  Age: 53 Year
  Sex: Male
  Weight: 79.38 kg

DRUGS (1)
  1. QUINAPRIL [Suspect]
     Indication: ESSENTIAL HYPERTENSION
     Route: 048
     Dates: start: 20140501, end: 20140520

REACTIONS (6)
  - Blood pressure increased [None]
  - Drug ineffective [None]
  - Somnolence [None]
  - Lethargy [None]
  - Product quality issue [None]
  - Product substitution issue [None]
